FAERS Safety Report 5558693-1 (Version None)
Quarter: 2007Q4

REPORT INFORMATION
  Report Type: 
  Country: None (occurrence: None)
  Receive Date: 20071214
  Receipt Date: 20071204
  Transmission Date: 20080405
  Serious: Yes (Other)
  Sender: FDA-Public Use
  Company Number: JP-PFIZER INC-2007102747

PATIENT
  Age: 49 Year
  Sex: Female

DRUGS (1)
  1. NASANYL [Suspect]

REACTIONS (1)
  - NORMAL TENSION GLAUCOMA [None]
